FAERS Safety Report 4877361-2 (Version None)
Quarter: 2006Q1

REPORT INFORMATION
  Report Type: 
  Country: None (occurrence: None)
  Receive Date: 20060109
  Receipt Date: 20051130
  Transmission Date: 20060701
  Serious: Yes (Death)
  Sender: FDA-Public Use
  Company Number: 2006001277

PATIENT

DRUGS (2)
  1. ATARAX [Suspect]
     Indication: ILL-DEFINED DISORDER
  2. COCAINE (COCAINE) [Suspect]
     Indication: ILL-DEFINED DISORDER

REACTIONS (1)
  - DRUG TOXICITY [None]
